FAERS Safety Report 10052503 (Version 1)
Quarter: 2014Q2

REPORT INFORMATION
  Report Type: Spontaneous
  Country: US (occurrence: None)
  Receive Date: 20140401
  Receipt Date: 20140401
  Transmission Date: 20141212
  Serious: Yes (Hospitalization)
  Sender: FDA-Public Use
  Company Number: None

PATIENT
  Age: 81 Year
  Sex: Male
  Weight: 81.65 kg

DRUGS (6)
  1. ENALAPRIL MALEATE [Suspect]
     Indication: HYPERTENSION
     Dosage: 1 TABLET
     Route: 048
     Dates: start: 20140225, end: 20140322
  2. NEXIUM [Concomitant]
  3. BABY ASPIRIN [Concomitant]
  4. FLUTICASONE PROPIONATE NASAL SPRAY [Concomitant]
  5. DULERA INHALATION AEROSOL [Concomitant]
  6. MONTELUKAST [Concomitant]

REACTIONS (1)
  - Pancreatitis [None]
